FAERS Safety Report 9778000 (Version 4)
Quarter: 2014Q1

REPORT INFORMATION
  Report Type: Spontaneous
  Country: US (occurrence: US)
  Receive Date: 20131223
  Receipt Date: 20140326
  Transmission Date: 20141002
  Serious: Yes (Hospitalization, Other)
  Sender: FDA-Public Use
  Company Number: US-ASTRAZENECA-2013SE31817

PATIENT
  Age: 70 Year
  Sex: Female
  Weight: 46.3 kg

DRUGS (8)
  1. SYMBICORT PMDI [Suspect]
     Indication: ASTHMA
     Dosage: 160/4.5 MCG, 2 PUFFS TWO TIMES A DAY
     Route: 055
     Dates: start: 2011
  2. SYMBICORT PMDI [Suspect]
     Indication: DYSPNOEA
     Dosage: 160/4.5 MCG, 2 PUFFS TWO TIMES A DAY
     Route: 055
     Dates: start: 2011
  3. SYMBICORT PMDI [Suspect]
     Indication: CHRONIC OBSTRUCTIVE PULMONARY DISEASE
     Dosage: 160/4.5 MCG, 2 PUFFS TWO TIMES A DAY
     Route: 055
     Dates: start: 2011
  4. OTHER MEDICATION [Suspect]
     Route: 065
  5. SINGULAIR [Concomitant]
     Indication: MULTIPLE ALLERGIES
     Dosage: HS
     Route: 048
  6. CITERZINE [Concomitant]
     Indication: SINUS DISORDER
     Dosage: DAILY
     Route: 048
  7. CITERZINE [Concomitant]
     Indication: MULTIPLE ALLERGIES
     Dosage: DAILY
     Route: 048
  8. COMBIVENT [Concomitant]
     Indication: RESPIRATION ABNORMAL
     Dosage: AS REQUIRED
     Dates: start: 2011

REACTIONS (5)
  - Cerebrovascular accident [Recovered/Resolved]
  - Epistaxis [Not Recovered/Not Resolved]
  - Drug effect decreased [Not Recovered/Not Resolved]
  - Intentional drug misuse [Unknown]
  - Circumstance or information capable of leading to medication error [Unknown]
